FAERS Safety Report 24115537 (Version 2)
Quarter: 2025Q3

REPORT INFORMATION
  Report Type: Spontaneous
  Country: US (occurrence: US)
  Receive Date: 20240721
  Receipt Date: 20250718
  Transmission Date: 20251020
  Serious: No
  Sender: NOVO NORDISK
  Company Number: US-NOVOPROD-1225369

PATIENT
  Age: 42 Year
  Sex: Male

DRUGS (1)
  1. WEGOVY [Suspect]
     Active Substance: SEMAGLUTIDE
     Indication: Product used for unknown indication
     Dosage: 1.7 MG, QW
     Route: 058
     Dates: start: 202305

REACTIONS (4)
  - Blood glucose increased [Unknown]
  - Injection site discharge [Recovering/Resolving]
  - Injection site haemorrhage [Recovering/Resolving]
  - Device malfunction [Unknown]

NARRATIVE: CASE EVENT DATE: 20230511
